FAERS Safety Report 14173414 (Version 2)
Quarter: 2020Q1

REPORT INFORMATION
  Report Type: Report from Study
  Country: US (occurrence: US)
  Receive Date: 20171109
  Receipt Date: 20200224
  Transmission Date: 20200409
  Serious: Yes (Death, Hospitalization, Other)
  Sender: FDA-Public Use
  Company Number: US-ACADIA PHARMACEUTICALS INC.-ACA-2017-005518

PATIENT
  Age: 70 Year
  Sex: Male
  Weight: 72 kg

DRUGS (16)
  1. NUPLAZID [Suspect]
     Active Substance: PIMAVANSERIN TARTRATE
     Dosage: 34 MG, QD
     Route: 048
     Dates: start: 20171008
  2. MEMANTINE HCL [Concomitant]
     Active Substance: MEMANTINE
     Indication: AMNESIA
  3. PRAMIPEXOLE ER [Suspect]
     Active Substance: PRAMIPEXOLE DIHYDROCHLORIDE
     Indication: RESTLESS LEGS SYNDROME
     Dosage: 1.5 MG; QD
     Route: 048
     Dates: start: 20190129
  4. PRAMIPEXOLE ER [Suspect]
     Active Substance: PRAMIPEXOLE DIHYDROCHLORIDE
     Indication: PARKINSON^S DISEASE
  5. QUETIAPINE. [Concomitant]
     Active Substance: QUETIAPINE
     Indication: PRODUCT USED FOR UNKNOWN INDICATION
     Dosage: 25 MG, UNK
  6. SINEMET [Concomitant]
     Active Substance: CARBIDOPA\LEVODOPA
     Dosage: 25/100 MG; 2 TABS 5 TIMES DAILY
     Route: 048
     Dates: start: 20190622
  7. NUPLAZID [Suspect]
     Active Substance: PIMAVANSERIN TARTRATE
     Indication: HALLUCINATION
     Dosage: 34 MG, QD
     Route: 048
     Dates: start: 20171006
  8. SINEMET [Concomitant]
     Active Substance: CARBIDOPA\LEVODOPA
     Dosage: 25/100 MG; 1.5 QHS 4 TIMES DAILY
     Route: 048
     Dates: start: 20190522, end: 20190622
  9. RIVASTIGMINE PATCH [Concomitant]
     Active Substance: RIVASTIGMINE
     Indication: AMNESIA
  10. NUPLAZID [Suspect]
     Active Substance: PIMAVANSERIN TARTRATE
     Indication: PARKINSON^S DISEASE PSYCHOSIS
     Dosage: 34 MG, QD
     Route: 048
     Dates: start: 20170821
  11. RIVASTIGMINE PATCH [Concomitant]
     Active Substance: RIVASTIGMINE
     Indication: PARKINSON^S DISEASE PSYCHOSIS
     Dosage: 9.5 MG DAILY
     Route: 062
     Dates: start: 20151204
  12. PROPRANOLOL [Concomitant]
     Active Substance: PROPRANOLOL HYDROCHLORIDE
     Indication: HYPERTENSION
     Dosage: 120 MILLIGRAM, QD
     Route: 048
     Dates: start: 20151204
  13. ZOLOFT [Concomitant]
     Active Substance: SERTRALINE HYDROCHLORIDE
     Indication: ANXIETY DISORDER
     Dosage: 50 MG, QD
     Route: 048
     Dates: start: 20151204
  14. MEMANTINE HCL [Concomitant]
     Active Substance: MEMANTINE
     Indication: PARKINSON^S DISEASE PSYCHOSIS
     Dosage: 10 MG, BID
     Route: 048
     Dates: start: 20151204
  15. ZOLOFT [Concomitant]
     Active Substance: SERTRALINE HYDROCHLORIDE
     Dosage: 1 TABLET QD
     Route: 048
     Dates: start: 20190129
  16. SINEMET [Concomitant]
     Active Substance: CARBIDOPA\LEVODOPA
     Indication: PARKINSON^S DISEASE
     Dosage: 25/100 MG; 2 TABS QID, 1 AB HS
     Route: 048
     Dates: start: 20151204

REACTIONS (7)
  - Confusional state [Recovered/Resolved]
  - Death [Fatal]
  - Urinary tract infection [Unknown]
  - Mental status changes [Recovered/Resolved]
  - Restlessness [Unknown]
  - Hallucination [Recovered/Resolved]
  - Agitation [Unknown]

NARRATIVE: CASE EVENT DATE: 20170909
